FAERS Safety Report 20855946 (Version 1)
Quarter: 2022Q2

REPORT INFORMATION
  Report Type: Spontaneous
  Country: US (occurrence: None)
  Receive Date: 20220520
  Receipt Date: 20220520
  Transmission Date: 20220720
  Serious: Yes (Other)
  Sender: FDA-Public Use
  Company Number: None

PATIENT
  Age: 52 Year
  Sex: Female
  Weight: 60.75 kg

DRUGS (2)
  1. PAXLOVID [Suspect]
     Active Substance: NIRMATRELVIR\RITONAVIR
     Indication: COVID-19
     Dosage: 3 UNK TWICE A DAY ORAL?
     Route: 048
     Dates: start: 20220506, end: 20220511
  2. PAXLOVID [Suspect]
     Active Substance: NIRMATRELVIR\RITONAVIR
     Indication: Illness

REACTIONS (4)
  - Rebound effect [None]
  - COVID-19 [None]
  - Ageusia [None]
  - Anosmia [None]

NARRATIVE: CASE EVENT DATE: 20220519
